FAERS Safety Report 13689810 (Version 2)
Quarter: 2017Q2

REPORT INFORMATION
  Report Type: Spontaneous
  Country: US (occurrence: US)
  Receive Date: 20170626
  Receipt Date: 20170629
  Transmission Date: 20170830
  Serious: No
  Sender: FDA-Public Use
  Company Number: US-PFIZER INC-2017274208

PATIENT
  Age: 61 Year
  Sex: Male
  Weight: 84.35 kg

DRUGS (2)
  1. IBUPROFEN. [Concomitant]
     Active Substance: IBUPROFEN
     Indication: PAIN
     Dosage: 800 MG, AS NEEDED
  2. VIAGRA [Suspect]
     Active Substance: SILDENAFIL CITRATE
     Indication: SEXUAL DYSFUNCTION
     Dosage: 100 MG, AS NEEDED

REACTIONS (7)
  - Hypertension [Unknown]
  - Flushing [Unknown]
  - Nausea [Unknown]
  - Feeling abnormal [Unknown]
  - Blood testosterone decreased [Unknown]
  - Euphoric mood [Unknown]
  - Drug ineffective [Unknown]
